FAERS Safety Report 9404790 (Version 1)
Quarter: 2013Q3

REPORT INFORMATION
  Report Type: Spontaneous
  Country: US (occurrence: US)
  Receive Date: 20130717
  Receipt Date: 20130717
  Transmission Date: 20140515
  Serious: Yes (Hospitalization)
  Sender: FDA-Public Use
  Company Number: US-BAYER-2013-086487

PATIENT
  Age: 39 Year
  Sex: Female

DRUGS (12)
  1. YASMIN [Suspect]
  2. YAZ [Suspect]
  3. CALCIUM [Concomitant]
  4. VITAMIN D [Concomitant]
  5. METFORMIN [Concomitant]
  6. ALPRAZOLAM [Concomitant]
  7. FLUOXETINE [Concomitant]
  8. VENTOLIN [Concomitant]
  9. SINGULAIR [Concomitant]
  10. ADVAIR [Concomitant]
  11. PROZAC [Concomitant]
  12. ORTHO-NOVUM [Concomitant]

REACTIONS (1)
  - Deep vein thrombosis [None]
